FAERS Safety Report 19237658 (Version 1)
Quarter: 2021Q2

REPORT INFORMATION
  Report Type: Spontaneous
  Country: DE (occurrence: DE)
  Receive Date: 20210510
  Receipt Date: 20210510
  Transmission Date: 20210717
  Serious: Yes (Other)
  Sender: FDA-Public Use
  Company Number: NVSC2021DE099064

PATIENT
  Sex: Male

DRUGS (1)
  1. VALSARTAN ? 1 A PHARMA 80 MG FILMTABLETTEN [Suspect]
     Active Substance: VALSARTAN
     Indication: HYPERTENSION
     Dosage: UNK
     Route: 065
     Dates: start: 2020

REACTIONS (5)
  - Rash [Recovering/Resolving]
  - Prostatic disorder [Unknown]
  - Renal failure [Unknown]
  - Rash [Recovered/Resolved]
  - Acquired cystic kidney disease [Unknown]

NARRATIVE: CASE EVENT DATE: 2020
